FAERS Safety Report 21260784 (Version 1)
Quarter: 2022Q3

REPORT INFORMATION
  Report Type: Spontaneous
  Country: US (occurrence: US)
  Receive Date: 20220826
  Receipt Date: 20220826
  Transmission Date: 20221026
  Serious: No
  Sender: FDA-Public Use
  Company Number: US-009507513-2208USA009673

PATIENT
  Age: 65 Year
  Sex: Male

DRUGS (6)
  1. DIFICID [Suspect]
     Active Substance: FIDAXOMICIN
     Indication: Septic shock
     Dosage: 200 MILLIGRAM, BID
  2. DIFICID [Suspect]
     Active Substance: FIDAXOMICIN
     Indication: Clostridium difficile infection
  3. VANCOMYCIN [Concomitant]
     Active Substance: VANCOMYCIN
     Indication: Clostridium difficile infection
     Dosage: 125 MILLIGRAM, Q6H
  4. VANCOMYCIN [Concomitant]
     Active Substance: VANCOMYCIN
     Indication: Septic shock
  5. METRONIDAZOLE [Concomitant]
     Active Substance: METRONIDAZOLE
     Indication: Clostridium difficile infection
     Dosage: 500 MILLIGRAM, Q8H
     Route: 042
  6. METRONIDAZOLE [Concomitant]
     Active Substance: METRONIDAZOLE
     Indication: Septic shock

REACTIONS (1)
  - Incorrect route of product administration [Unknown]
